FAERS Safety Report 10801077 (Version 2)
Quarter: 2015Q1

REPORT INFORMATION
  Report Type: Spontaneous
  Country: None (occurrence: US)
  Receive Date: 20150216
  Receipt Date: 20150216
  Transmission Date: 20150721
  Serious: No
  Sender: FDA-Public Use
  Company Number: US-ALLERGAN-1423322US

PATIENT
  Age: 55 Year
  Sex: Female

DRUGS (4)
  1. HYDROCHLOROTHIAZIDE. [Concomitant]
     Active Substance: HYDROCHLOROTHIAZIDE
     Indication: BLOOD PRESSURE
     Dosage: UNK
     Route: 048
  2. RESTASIS [Suspect]
     Active Substance: CYCLOSPORINE
     Indication: PRODUCT USED FOR UNKNOWN INDICATION
     Dosage: 2 GTT, BID
     Route: 047
     Dates: start: 20141029
  3. INFLUENZA VACCINE [Concomitant]
     Active Substance: INFLUENZA VIRUS VACCINE
     Dosage: UNK, SINGLE
     Dates: start: 20140930, end: 20140930
  4. ESTRACE [Concomitant]
     Active Substance: ESTRADIOL
     Dosage: UNK
     Route: 067

REACTIONS (23)
  - Headache [Unknown]
  - Seizure [Unknown]
  - Rash scarlatiniform [Recovering/Resolving]
  - Urine analysis abnormal [Unknown]
  - Renal failure [Unknown]
  - Pyrexia [Unknown]
  - Arthralgia [Unknown]
  - Multiple use of single-use product [Unknown]
  - Dizziness [Unknown]
  - Hypersensitivity [Unknown]
  - Chromaturia [Recovered/Resolved]
  - Urticaria [Recovered/Resolved]
  - Rash scarlatiniform [Recovering/Resolving]
  - Dysuria [Unknown]
  - Asthenia [Unknown]
  - Incorrect product storage [Unknown]
  - Blood urine present [Recovered/Resolved]
  - Urticaria [Recovered/Resolved]
  - Ear pain [Unknown]
  - Hyperhidrosis [Recovering/Resolving]
  - Sneezing [Recovered/Resolved]
  - Back pain [Unknown]
  - Chills [Unknown]

NARRATIVE: CASE EVENT DATE: 20041103
